FAERS Safety Report 12080394 (Version 4)
Quarter: 2016Q2

REPORT INFORMATION
  Report Type: Report from Study
  Country: CO (occurrence: CO)
  Receive Date: 20160216
  Receipt Date: 20160427
  Transmission Date: 20160815
  Serious: Yes (Hospitalization, Other)
  Sender: FDA-Public Use
  Company Number: CO-ABBVIE-16K-036-1556661-00

PATIENT
  Age: 57 Year
  Sex: Female
  Weight: 70 kg

DRUGS (1)
  1. HUMIRA [Suspect]
     Active Substance: ADALIMUMAB
     Indication: RHEUMATOID ARTHRITIS
     Route: 058
     Dates: start: 20051101, end: 20160112

REACTIONS (7)
  - Chest X-ray abnormal [Unknown]
  - Ovarian mass [Not Recovered/Not Resolved]
  - Dyspnoea [Recovering/Resolving]
  - Pyrexia [Recovering/Resolving]
  - Ultrasound abdomen abnormal [Unknown]
  - Tuberculosis gastrointestinal [Not Recovered/Not Resolved]
  - Intestinal mass [Not Recovered/Not Resolved]

NARRATIVE: CASE EVENT DATE: 20160122
